FAERS Safety Report 16217318 (Version 1)
Quarter: 2019Q2

REPORT INFORMATION
  Report Type: Spontaneous
  Country: CH (occurrence: CH)
  Receive Date: 20190419
  Receipt Date: 20190419
  Transmission Date: 20190711
  Serious: Yes (Life-Threatening, Other)
  Sender: FDA-Public Use
  Company Number: CH-PFIZER INC-2019159611

PATIENT
  Age: 37 Year
  Sex: Male

DRUGS (4)
  1. DIAPHIN SR [Suspect]
     Active Substance: DIAMORPHINE
     Indication: DRUG DEPENDENCE
     Dosage: UNK
     Route: 048
  2. TEMESTA (LORAZEPAM) [Suspect]
     Active Substance: LORAZEPAM
     Dosage: 2.5 MG, AS NEEDED
     Route: 048
  3. REMERON [Concomitant]
     Active Substance: MIRTAZAPINE
     Dosage: 30 MG, AS NEEDED
  4. DIAPHIN [Suspect]
     Active Substance: DIACETYLMORPHINE HYDROCHLORIDE
     Indication: DRUG DEPENDENCE
     Dosage: 140 MG, 2X/DAY (2X140 MG/DAY)
     Route: 041

REACTIONS (14)
  - Drug interaction [Unknown]
  - Coma [Unknown]
  - Eyelid function disorder [Unknown]
  - Unresponsive to stimuli [Unknown]
  - Respiratory depression [Recovered/Resolved]
  - Sedation [Unknown]
  - Apnoea [Unknown]
  - Oxygen saturation decreased [Unknown]
  - Hypotonia [Unknown]
  - Disturbance in attention [Recovered/Resolved]
  - Overdose [Recovered/Resolved]
  - Depressed level of consciousness [Recovered/Resolved]
  - Toxicity to various agents [Unknown]
  - Hyporesponsive to stimuli [Unknown]

NARRATIVE: CASE EVENT DATE: 20181024
